FAERS Safety Report 22030236 (Version 1)
Quarter: 2023Q1

REPORT INFORMATION
  Report Type: Spontaneous
  Country: US (occurrence: None)
  Receive Date: 20230222
  Receipt Date: 20230222
  Transmission Date: 20230418
  Serious: Yes (Life-Threatening, Hospitalization, Disabling)
  Sender: FDA-Public Use
  Company Number: None

PATIENT
  Age: 60 Year
  Sex: Female
  Weight: 54 kg

DRUGS (14)
  1. AIMOVIG [Suspect]
     Active Substance: ERENUMAB-AOOE
     Indication: Migraine
     Dosage: FREQUENCY : MONTHLY;?
     Route: 058
     Dates: start: 20190801, end: 20210824
  2. VENLAFAXINE [Concomitant]
     Active Substance: VENLAFAXINE HYDROCHLORIDE
  3. LUBIPROSTONE [Concomitant]
     Active Substance: LUBIPROSTONE
  4. tazadone [Concomitant]
  5. pantoptazole [Concomitant]
  6. PROGESTERONE [Concomitant]
     Active Substance: PROGESTERONE
  7. TESTOSTERONE [Concomitant]
     Active Substance: TESTOSTERONE
  8. VITAMIN D3 [Concomitant]
     Active Substance: CHOLECALCIFEROL
  9. STOOL SOFTENER (DOCUSATE) [Concomitant]
     Active Substance: DOCUSATE
  10. MIRALAX [Concomitant]
     Active Substance: POLYETHYLENE GLYCOL 3350
  11. METAMUCIL [Concomitant]
     Active Substance: PLANTAGO SEED
  12. MAGNESIUM [Concomitant]
     Active Substance: MAGNESIUM
  13. VITAMIN E [Concomitant]
     Active Substance: .ALPHA.-TOCOPHEROL
  14. CLARITIN [Concomitant]
     Active Substance: LORATADINE

REACTIONS (2)
  - Intestinal obstruction [None]
  - Infection [None]

NARRATIVE: CASE EVENT DATE: 20210824
